FAERS Safety Report 8393999-2 (Version None)
Quarter: 2012Q2

REPORT INFORMATION
  Report Type: 
  Country: None (occurrence: None)
  Receive Date: 20120523
  Receipt Date: 20120511
  Transmission Date: 20120825
  Serious: Yes (Hospitalization)
  Sender: FDA-Public Use
  Company Number: 2012000116

PATIENT
  Age: 86 Year
  Sex: Female

DRUGS (6)
  1. SPIRONOLACTONE [Suspect]
     Indication: HYPERTENSION
     Dosage: ORAL
     Route: 048
     Dates: end: 20120111
  2. ASPEGIC (ACETYLSALICYLATE LYSINE) [Concomitant]
  3. ACEON [Suspect]
     Indication: HYPERTENSION
     Dosage: 2.5 MG, UNK, ORAL
     Route: 048
     Dates: end: 20120111
  4. SPIRONOLACTONE [Suspect]
     Indication: HYPERTENSION
     Dosage: UNK
     Dates: end: 20120111
  5. ESIDRIX [Concomitant]
  6. NICARDIPINE HYDROCHLORIDE [Concomitant]

REACTIONS (3)
  - FALL [None]
  - INAPPROPRIATE ANTIDIURETIC HORMONE SECRETION [None]
  - HYPOKALAEMIA [None]
